FAERS Safety Report 6194842-2 (Version None)
Quarter: 2009Q2

REPORT INFORMATION
  Report Type: 
  Country: None (occurrence: None)
  Receive Date: 20090515
  Receipt Date: 20090506
  Transmission Date: 20091009
  Serious: Yes (Death)
  Sender: FDA-Public Use
  Company Number: 1000006213

PATIENT
  Age: 60 Year
  Sex: Male

DRUGS (2)
  1. CELEXA [Suspect]
  2. ASPIRIN [Concomitant]

REACTIONS (1)
  - CEREBRAL HAEMORRHAGE [None]
